FAERS Safety Report 23407779 (Version 1)
Quarter: 2024Q1

REPORT INFORMATION
  Report Type: Spontaneous
  Country: US (occurrence: US)
  Receive Date: 20240117
  Receipt Date: 20240117
  Transmission Date: 20240410
  Serious: No
  Sender: FDA-Public Use
  Company Number: US-TERSERA THERAPEUTICS LLC-2023TRS005181

PATIENT

DRUGS (9)
  1. PRIALT [Suspect]
     Active Substance: ZICONOTIDE ACETATE
     Indication: Product used for unknown indication
     Dosage: UNK
     Route: 037
     Dates: start: 20230822
  2. DILAUDID [Suspect]
     Active Substance: HYDROMORPHONE HYDROCHLORIDE
     Indication: Product used for unknown indication
     Dosage: 2.002 MG, QD (CONCENTRATION 4MG)
     Route: 037
  3. DILAUDID [Suspect]
     Active Substance: HYDROMORPHONE HYDROCHLORIDE
     Dosage: 2.302 MG, QD (CONCENTRATION 4MG)
     Route: 037
  4. BUPIVACAINE [Suspect]
     Active Substance: BUPIVACAINE
     Indication: Product used for unknown indication
     Dosage: 15.018 MG, QD (CONCENTRATION 30 MG)
     Route: 037
  5. BUPIVACAINE [Suspect]
     Active Substance: BUPIVACAINE
     Dosage: 17.271 MG, QD (CONCENTRATION 30 MG)
     Route: 037
  6. BACLOFEN [Suspect]
     Active Substance: BACLOFEN
     Indication: Product used for unknown indication
     Dosage: 375.456 MCG, QD (CONCENTRATION 750 MCG)
     Route: 037
  7. BACLOFEN [Suspect]
     Active Substance: BACLOFEN
     Dosage: 431.775 MCG, QD  (CONCENTRATION 750 MCG)
     Route: 037
  8. CLONIDINE [Suspect]
     Active Substance: CLONIDINE
     Indication: Product used for unknown indication
     Dosage: 300.365 MCG, QD (CONCENTRATION 600 MCG)
     Route: 037
  9. CLONIDINE [Suspect]
     Active Substance: CLONIDINE
     Dosage: 345.42 MCG, QD (CONCENTRATION 600 MCG)
     Route: 037

REACTIONS (3)
  - Fatigue [Recovered/Resolved]
  - Off label use [Unknown]
  - Product use issue [Unknown]

NARRATIVE: CASE EVENT DATE: 20230828
